FAERS Safety Report 7889589 (Version 2)
Quarter: 2013Q3

REPORT INFORMATION
  Report Type: Spontaneous
  Country: US (occurrence: US)
  Receive Date: 20110407
  Receipt Date: 20130916
  Transmission Date: 20140515
  Serious: Yes (Other)
  Sender: FDA-Public Use
  Company Number: US-ELI_LILLY_AND_COMPANY-US201104000105

PATIENT
  Sex: Male

DRUGS (29)
  1. CYMBALTA [Suspect]
     Indication: DEPRESSION
     Dosage: 30 MG, UNK
  2. CYMBALTA [Suspect]
     Indication: DEMYELINATING POLYNEUROPATHY
     Dosage: 60 MG, UNK
  3. CYMBALTA [Suspect]
     Dosage: 30 MG, QOD
  4. CYMBALTA [Suspect]
     Dosage: 30 MG, QD
  5. CYMBALTA [Suspect]
     Dosage: 60 MG, QD
  6. CYMBALTA [Suspect]
     Dosage: 30 MG, UNK
     Dates: start: 20110224
  7. CYMBALTA [Suspect]
     Dosage: 40 MG, UNKNOWN
  8. CYMBALTA [Suspect]
     Dosage: 20 MG, UNKNOWN
  9. LYRICA [Concomitant]
     Dosage: 100 MG, EACH MORNING
  10. LYRICA [Concomitant]
     Dosage: 150 MG, EACH MORNING
  11. TIZANIDINE [Concomitant]
  12. ALPRAZOLAM [Concomitant]
  13. B12                                /00056202/ [Concomitant]
  14. IRON [Concomitant]
  15. ZINC [Concomitant]
  16. ZOLOFT [Concomitant]
  17. LUNESTA [Concomitant]
  18. PREDNISONE [Concomitant]
  19. MYCOPHENOLATE [Concomitant]
  20. FOLIC ACID [Concomitant]
  21. NORTRIPTYLINE [Concomitant]
  22. NUVIGIL [Concomitant]
  23. FUROSEMIDE [Concomitant]
  24. VITAMIN D                          /00107901/ [Concomitant]
  25. COPPER [Concomitant]
  26. OXYCONTIN [Concomitant]
  27. STOOL SOFTENER [Concomitant]
  28. HYDROCODONE [Concomitant]
  29. GAMUNEX [Concomitant]

REACTIONS (14)
  - Muscular weakness [Unknown]
  - Burning sensation [Unknown]
  - Pain [Unknown]
  - Amnesia [Unknown]
  - Pain [Unknown]
  - Diplopia [Unknown]
  - Vision blurred [Unknown]
  - Dizziness [Unknown]
  - Nausea [Unknown]
  - Hyperhidrosis [Unknown]
  - Paraesthesia [Unknown]
  - Asthenia [Unknown]
  - Dry mouth [Unknown]
  - Hallucination [Unknown]
